FAERS Safety Report 5701010-4 (Version None)
Quarter: 2008Q2

REPORT INFORMATION
  Report Type: 
  Country: None (occurrence: None)
  Receive Date: 20080410
  Receipt Date: 20080403
  Transmission Date: 20081010
  Serious: Yes (Other)
  Sender: FDA-Public Use
  Company Number: US-ASTRAZENECA-2006UW26205

PATIENT
  Age: 57 Year
  Sex: Female
  Weight: 90.9 kg

DRUGS (7)
  1. SEROQUEL [Suspect]
     Indication: DEPRESSION
     Dosage: 100 MG - 300 MG
     Route: 048
     Dates: start: 19970101, end: 20030101
  2. SEROQUEL [Suspect]
     Indication: INSOMNIA
     Dosage: 100 MG - 300 MG
     Route: 048
     Dates: start: 19970101, end: 20030101
  3. ZYPREXA [Concomitant]
     Dates: start: 20040101
  4. FASTIN [Concomitant]
     Dates: start: 20070101
  5. ABILIFY [Concomitant]
     Dates: start: 19990101, end: 20030101
  6. RISPERDAL [Concomitant]
     Dates: start: 19980101, end: 19990101
  7. THORAZINE [Concomitant]
     Dates: start: 19990101

REACTIONS (11)
  - BLOOD CHOLESTEROL INCREASED [None]
  - BLOOD TRIGLYCERIDES INCREASED [None]
  - DIABETES MELLITUS [None]
  - HERNIA REPAIR [None]
  - LIVER DISORDER [None]
  - MASTECTOMY [None]
  - NEOPLASM MALIGNANT [None]
  - OBESITY [None]
  - PAIN [None]
  - PANCREATITIS [None]
  - WEIGHT INCREASED [None]
